FAERS Safety Report 21927446 (Version 2)
Quarter: 2023Q1

REPORT INFORMATION
  Report Type: Spontaneous
  Country: US (occurrence: US)
  Receive Date: 20230130
  Receipt Date: 20230208
  Transmission Date: 20230418
  Serious: No
  Sender: FDA-Public Use
  Company Number: US-TEVA-2023-US-2847802

PATIENT
  Sex: Male

DRUGS (7)
  1. PROVIGIL [Suspect]
     Active Substance: MODAFINIL
     Indication: Fatigue
     Dosage: 500 MILLIGRAM DAILY;
     Route: 065
     Dates: start: 2008
  2. PROVIGIL [Suspect]
     Active Substance: MODAFINIL
     Indication: Hypersomnia
  3. NUVIGIL [Suspect]
     Active Substance: ARMODAFINIL
     Indication: Fatigue
     Dosage: 400 MILLIGRAM DAILY;
     Route: 065
     Dates: start: 2010, end: 2015
  4. NUVIGIL [Suspect]
     Active Substance: ARMODAFINIL
     Indication: Hypersomnia
     Route: 065
     Dates: start: 2015
  5. MODAFINIL [Suspect]
     Active Substance: MODAFINIL
     Indication: Fatigue
     Dosage: 400 MILLIGRAM DAILY;
     Route: 065
     Dates: start: 2015
  6. MODAFINIL [Suspect]
     Active Substance: MODAFINIL
     Indication: Hypersomnia
  7. DEXTROAMPHETAMINE [Suspect]
     Active Substance: DEXTROAMPHETAMINE
     Indication: Product used for unknown indication
     Route: 065

REACTIONS (4)
  - Fatigue [Unknown]
  - Mental fatigue [Unknown]
  - Therapeutic product effect decreased [Unknown]
  - Heart rate increased [Unknown]
